FAERS Safety Report 6439902-3 (Version None)
Quarter: 2009Q4

REPORT INFORMATION
  Report Type: 
  Country: None (occurrence: None)
  Receive Date: 20091110
  Receipt Date: 20091027
  Transmission Date: 20100525
  Serious: Yes (Hospitalization)
  Sender: FDA-Public Use
  Company Number: 230499M09USA

PATIENT
  Age: 32 Year
  Sex: Female

DRUGS (5)
  1. REBIF [Suspect]
     Indication: MULTIPLE SCLEROSIS
     Dosage: 44 MCG, 3 IN 1 WEEKS, SUBCUTANEOUS
     Route: 058
     Dates: start: 20090301, end: 20091010
  2. LISINOPRIL [Concomitant]
  3. DARVOCET [Concomitant]
  4. ZOCOR [Concomitant]
  5. CYMBALTA [Concomitant]

REACTIONS (4)
  - OVARIAN CYST TORSION [None]
  - PYREXIA [None]
  - SWELLING [None]
  - WHITE BLOOD CELL COUNT INCREASED [None]
